FAERS Safety Report 12773057 (Version 1)
Quarter: 2016Q3

REPORT INFORMATION
  Report Type: Spontaneous
  Country: US (occurrence: US)
  Receive Date: 20160922
  Receipt Date: 20160922
  Transmission Date: 20161109
  Serious: No
  Sender: FDA-Public Use
  Company Number: US-BION-20160027

PATIENT
  Age: 69 Year
  Sex: Female
  Weight: 61.24 kg

DRUGS (2)
  1. GENERIC ZYRTEC, UNKNOWN [Suspect]
     Active Substance: CETIRIZINE HYDROCHLORIDE
     Indication: MULTIPLE ALLERGIES
  2. ZYRTEC [Suspect]
     Active Substance: CETIRIZINE HYDROCHLORIDE
     Indication: MULTIPLE ALLERGIES
     Route: 048
     Dates: start: 20160404

REACTIONS (3)
  - Blood pressure increased [Unknown]
  - Product substitution issue [None]
  - Drug ineffective [Not Recovered/Not Resolved]
